FAERS Safety Report 8575632-X (Version None)
Quarter: 2012Q3

REPORT INFORMATION
  Report Type: 
  Country: None (occurrence: None)
  Receive Date: 20120807
  Receipt Date: 20120802
  Transmission Date: 20120928
  Serious: Yes (Hospitalization)
  Sender: FDA-Public Use
  Company Number: PHHY2012BR067402

PATIENT
  Sex: Female
  Weight: 42 kg

DRUGS (2)
  1. EXELON [Suspect]
     Indication: DEMENTIA ALZHEIMER'S TYPE
     Dosage: 4.6 MG (9MG/5CM) ONE PATCH DAILY
     Route: 062
  2. EXELON [Suspect]
     Dosage: 9.5 MG (18/10CM), ONE PATCH DAILY
     Route: 062

REACTIONS (2)
  - ASTHENIA [None]
  - HYPOPHAGIA [None]
